FAERS Safety Report 5011070-4 (Version None)
Quarter: 2006Q2

REPORT INFORMATION
  Report Type: 
  Country: None (occurrence: None)
  Receive Date: 20060523
  Receipt Date: 20060520
  Transmission Date: 20061013
  Serious: Yes (Hospitalization)
  Sender: FDA-Public Use
  Company Number: 221988

PATIENT
  Age: 56 Year
  Sex: Female
  Weight: 75.3 kg

DRUGS (11)
  1. AVASTIN [Suspect]
     Indication: COLON CANCER
     Dosage: 5 MG/KG, INTRAVENOUS
     Route: 042
     Dates: start: 20051025, end: 20051213
  2. ERLOTINIB (ERLOTINIB) TABLET, 100MG [Suspect]
     Indication: COLON CANCER
     Dosage: 150 MG/M2, ORAL
     Route: 048
     Dates: start: 20051025, end: 20051213
  3. OXALIPLATIN (OXALIPLATIN) [Suspect]
     Indication: COLON CANCER
     Dosage: 85 MG/M2, INTRAVENOUS
     Route: 042
     Dates: start: 20051025, end: 20051213
  4. FLUOROURACIL [Suspect]
     Indication: COLON CANCER
     Dosage: INTRAVEOUS
     Route: 042
     Dates: start: 20051025, end: 20051213
  5. LEUCOVORIN (LECUCOVORIN) [Suspect]
     Indication: COLON CANCER
     Dates: start: 20051025, end: 20051213
  6. LEVOXYL [Concomitant]
  7. HCTZ (HYDROCHLOROTHIAZIDE) [Concomitant]
  8. TOPROL-XL [Concomitant]
  9. VICODIN (ACETAMINOPHEN, HYDROCHLORIDE BITARTRATE) [Concomitant]
  10. ZANTAC (RANITDINE) [Concomitant]
  11. COMPAZINE [Concomitant]

REACTIONS (14)
  - BACTERIA URINE IDENTIFIED [None]
  - BLOOD BICARBONATE DECREASED [None]
  - BLOOD CREATININE INCREASED [None]
  - BLOOD GLUCOSE INCREASED [None]
  - BLOOD POTASSIUM DECREASED [None]
  - DIARRHOEA [None]
  - FEBRILE NEUTROPENIA [None]
  - MALAISE [None]
  - NAUSEA [None]
  - ORAL INTAKE REDUCED [None]
  - RED BLOOD CELLS URINE POSITIVE [None]
  - URINARY CASTS [None]
  - VOMITING [None]
  - WHITE BLOOD CELLS URINE POSITIVE [None]
